FAERS Safety Report 16760637 (Version 6)
Quarter: 2021Q1

REPORT INFORMATION
  Report Type: Spontaneous
  Country: US (occurrence: US)
  Receive Date: 20190830
  Receipt Date: 20210125
  Transmission Date: 20210419
  Serious: Yes (Hospitalization, Other)
  Sender: FDA-Public Use
  Company Number: US-PFIZER INC-2019369930

PATIENT
  Age: 76 Year
  Sex: Female
  Weight: 65.77 kg

DRUGS (15)
  1. CADUET [Suspect]
     Active Substance: AMLODIPINE BESYLATE\ATORVASTATIN CALCIUM
     Dosage: UNK
  2. CELEBREX [Suspect]
     Active Substance: CELECOXIB
     Indication: ARTHRITIS
     Dosage: 50 MG, 2X/DAY
     Dates: start: 2015
  3. TRAMADOL. [Concomitant]
     Active Substance: TRAMADOL
     Dosage: 50 MG, UNK
     Dates: start: 1998
  4. SYNTHROID [Concomitant]
     Active Substance: LEVOTHYROXINE SODIUM
     Dosage: 75 UG, UNK (0.075)
     Dates: start: 1998
  5. CADUET [Suspect]
     Active Substance: AMLODIPINE BESYLATE\ATORVASTATIN CALCIUM
     Indication: BLOOD CHOLESTEROL INCREASED
     Dosage: UNK (5MG?10MG, TABLET, BY MOUTH, ONCE EVERY NIGHT AFTER SUPPER)
     Route: 048
  6. ACYCLOVIR. [Concomitant]
     Active Substance: ACYCLOVIR
     Dosage: 800 MG, UNK
     Dates: start: 2000
  7. CADUET [Suspect]
     Active Substance: AMLODIPINE BESYLATE\ATORVASTATIN CALCIUM
     Indication: HYPERTENSION
     Dosage: UNK, 1X/DAY
  8. SKELAXIN [Suspect]
     Active Substance: METAXALONE
     Dosage: 800 MG, 2X/DAY
     Dates: start: 2016
  9. SKELAXIN [Suspect]
     Active Substance: METAXALONE
     Indication: ARTHRITIS
     Dosage: 800 MG, 2X/DAY
     Dates: start: 2016
  10. COREG CR [Concomitant]
     Active Substance: CARVEDILOL PHOSPHATE
     Dosage: 10 MG, UNK
     Dates: start: 2015
  11. ESTRACE [Concomitant]
     Active Substance: ESTRADIOL
     Dosage: UNK
     Route: 067
  12. ALPRAZOLAM. [Concomitant]
     Active Substance: ALPRAZOLAM
     Dosage: 0.5 MG, UNK
     Dates: start: 2000
  13. IRBESARTAN HCTZ [Concomitant]
     Active Substance: HYDROCHLOROTHIAZIDE\IRBESARTAN
     Dosage: UNK (HYDROCHLOROTHIAZIDE 300 MG/ IRBESARTAN 12.5 MG)
     Dates: start: 2015
  14. VITAMIN D3 [Concomitant]
     Active Substance: CHOLECALCIFEROL
     Dosage: 25 UG (1000 IU)
  15. OS?CAL + D [Concomitant]
     Dosage: UNK
     Dates: start: 1995

REACTIONS (1)
  - Rotator cuff syndrome [Recovering/Resolving]
